FAERS Safety Report 20240329 (Version 1)
Quarter: 2021Q4

REPORT INFORMATION
  Report Type: Spontaneous
  Country: FR (occurrence: FR)
  Receive Date: 20211228
  Receipt Date: 20211228
  Transmission Date: 20220303
  Serious: Yes (Death, Life-Threatening)
  Sender: FDA-Public Use
  Company Number: None

PATIENT
  Sex: Male

DRUGS (1)
  1. VIMPAT [Suspect]
     Active Substance: LACOSAMIDE
     Indication: Epilepsy
     Dosage: UNK
     Route: 048
     Dates: start: 20211201, end: 20211203

REACTIONS (3)
  - Intestinal ischaemia [Fatal]
  - Cardio-respiratory arrest [Recovered/Resolved with Sequelae]
  - Atrioventricular block [Recovered/Resolved with Sequelae]

NARRATIVE: CASE EVENT DATE: 20211203
